FAERS Safety Report 7607737-1 (Version None)
Quarter: 2011Q3

REPORT INFORMATION
  Report Type: 
  Country: None (occurrence: None)
  Receive Date: 20110713
  Receipt Date: 20110617
  Transmission Date: 20111222
  Serious: Yes (Hospitalization, Other)
  Sender: FDA-Public Use
  Company Number: PHHY2011JP25959

PATIENT
  Sex: Male

DRUGS (12)
  1. ZANTAC [Concomitant]
     Dosage: 300 MG, UNK
     Route: 048
     Dates: start: 20080919
  2. PRIMPERAN TAB [Concomitant]
     Dosage: 15 MG, UNK
     Dates: start: 20101126
  3. AFINITOR [Suspect]
     Indication: METASTATIC RENAL CELL CARCINOMA
     Dosage: 10 MG
     Route: 048
     Dates: start: 20101105, end: 20101119
  4. LORCAM [Concomitant]
     Dosage: 8 MG, UNK
     Route: 048
     Dates: start: 20080919
  5. MAGMITT [Concomitant]
     Dosage: 1000 MG, UNK
     Route: 048
     Dates: start: 20080919
  6. SOLON [Concomitant]
     Dosage: 1 G, UNK
     Dates: start: 20080919
  7. ZOMETA [Suspect]
     Indication: METASTATIC RENAL CELL CARCINOMA
     Dosage: 3 MG, UNK
     Route: 041
     Dates: start: 20101105, end: 20110225
  8. AFINITOR [Suspect]
     Dosage: 5 MG
     Route: 048
     Dates: start: 20101225, end: 20110225
  9. INTERFERON ALFA [Concomitant]
     Indication: METASTATIC RENAL CELL CARCINOMA
     Dosage: 6000000 IU, UNK
  10. MICARDIS [Concomitant]
     Dosage: 40 MG, UNK
     Dates: start: 20080919
  11. CONIEL [Concomitant]
     Dosage: 4 MG, UNK
     Route: 048
     Dates: start: 20080919
  12. LANSOPRAZOLE [Concomitant]
     Dosage: 15 MG, UNK
     Dates: start: 20101119

REACTIONS (4)
  - INFECTED DERMAL CYST [None]
  - OSTEONECROSIS OF JAW [None]
  - STOMATITIS [None]
  - ANAEMIA [None]
